FAERS Safety Report 6312199-0 (Version None)
Quarter: 2009Q3

REPORT INFORMATION
  Report Type: 
  Country: None (occurrence: None)
  Receive Date: 20090817
  Receipt Date: 20090806
  Transmission Date: 20100115
  Serious: Yes (Other)
  Sender: FDA-Public Use
  Company Number: CN-PFIZER INC-2009252460

PATIENT
  Age: 46 Year

DRUGS (3)
  1. ATORVASTATIN CALCIUM [Suspect]
     Indication: CORONARY ARTERY DISEASE
     Dosage: 20 MG, 1X/DAY
     Dates: start: 20090101, end: 20090101
  2. ATORVASTATIN CALCIUM [Suspect]
     Indication: HYPERLIPIDAEMIA
  3. PLAVIX [Concomitant]
     Dosage: UNK
     Dates: start: 20090101

REACTIONS (3)
  - ASCITES [None]
  - CARDIAC ENZYMES INCREASED [None]
  - TRANSAMINASES INCREASED [None]
